FAERS Safety Report 9229082 (Version 2)
Quarter: 2013Q2

REPORT INFORMATION
  Report Type: Spontaneous
  Country: GB (occurrence: GB)
  Receive Date: 20130412
  Receipt Date: 20130418
  Transmission Date: 20140414
  Serious: Yes (Other)
  Sender: FDA-Public Use
  Company Number: GB-ASTRAZENECA-2013SE23114

PATIENT
  Age: 1 Year
  Sex: Female

DRUGS (1)
  1. PROPOFOL [Suspect]
     Indication: SURGERY
     Route: 042
     Dates: start: 201303

REACTIONS (2)
  - Hepatitis [Unknown]
  - Thrombocytopenia [Unknown]
